FAERS Safety Report 21037266 (Version 1)
Quarter: 2022Q3

REPORT INFORMATION
  Report Type: Spontaneous
  Country: US (occurrence: US)
  Receive Date: 20220703
  Receipt Date: 20220703
  Transmission Date: 20221026
  Serious: Yes (Hospitalization, Other)
  Sender: FDA-Public Use
  Company Number: US-AMGEN-USASP2022108131

PATIENT
  Age: 58 Year
  Sex: Female

DRUGS (3)
  1. BEVACIZUMAB [Suspect]
     Active Substance: BEVACIZUMAB
     Indication: Vitreous haemorrhage
     Dosage: 1.25 MILLIGRAM/0.05ML
  2. BEVACIZUMAB [Suspect]
     Active Substance: BEVACIZUMAB
     Indication: Cataract
  3. BEVACIZUMAB [Suspect]
     Active Substance: BEVACIZUMAB
     Indication: Diabetic retinopathy

REACTIONS (9)
  - Choroidal effusion [Unknown]
  - Serous retinal detachment [Unknown]
  - Anterior chamber cell [Unknown]
  - Macular oedema [Recovered/Resolved]
  - Vitreous fibrin [Recovered/Resolved]
  - Subretinal fluid [Unknown]
  - Retinal oedema [Unknown]
  - Disruption of the photoreceptor inner segment-outer segment [Unknown]
  - Off label use [Unknown]
